FAERS Safety Report 4798255-7 (Version None)
Quarter: 2005Q4

REPORT INFORMATION
  Report Type: 
  Country: None (occurrence: None)
  Receive Date: 20051014
  Receipt Date: 20051003
  Transmission Date: 20060501
  Serious: Yes (Life-Threatening, Hospitalization, Disabling)
  Sender: FDA-Public Use
  Company Number: US-JNJFOC-20040702146

PATIENT
  Sex: Female
  Weight: 62.14 kg

DRUGS (12)
  1. INFLIXIMAB [Suspect]
     Route: 042
  2. INFLIXIMAB [Suspect]
     Route: 042
  3. INFLIXIMAB [Suspect]
     Route: 042
  4. INFLIXIMAB [Suspect]
     Route: 042
  5. INFLIXIMAB [Suspect]
     Route: 042
  6. INFLIXIMAB [Suspect]
     Route: 042
  7. INFLIXIMAB [Suspect]
     Indication: CROHN'S DISEASE
     Route: 042
  8. ANTIBIOTICS [Concomitant]
  9. CORTICOSTEROIDS [Concomitant]
  10. PREDNISONE [Concomitant]
  11. ACETAMINOPHEN [Concomitant]
  12. ANTI-HISTAMINE TAB [Concomitant]

REACTIONS (4)
  - ADRENAL INSUFFICIENCY [None]
  - CANDIDIASIS [None]
  - PNEUMONIA KLEBSIELLA [None]
  - SEPSIS [None]
